FAERS Safety Report 23666726 (Version 1)
Quarter: 2024Q1

REPORT INFORMATION
  Report Type: Spontaneous
  Country: CN (occurrence: CN)
  Receive Date: 20240325
  Receipt Date: 20240325
  Transmission Date: 20240410
  Serious: Yes (Hospitalization)
  Sender: FDA-Public Use
  Company Number: CN-TOLMAR, INC.-24CN047689

PATIENT
  Age: 44 Year
  Sex: Female

DRUGS (3)
  1. JATENZO [Suspect]
     Active Substance: TESTOSTERONE UNDECANOATE
     Indication: Acquired amegakaryocytic thrombocytopenia
     Dosage: 120 MILLIGRAM, QD
     Dates: start: 20221204
  2. ELTROMBOPAG [Suspect]
     Active Substance: ELTROMBOPAG
     Indication: Acquired amegakaryocytic thrombocytopenia
     Dosage: 50 MILLIGRAM, QD
     Dates: start: 20221204
  3. GRANULOCYTE COLONY-STIMULATING FACTOR NOS [Concomitant]
     Active Substance: GRANULOCYTE COLONY-STIMULATING FACTOR NOS
     Indication: Acquired amegakaryocytic thrombocytopenia

REACTIONS (3)
  - Disease recurrence [Unknown]
  - Gingival bleeding [Unknown]
  - Drug ineffective for unapproved indication [Unknown]

NARRATIVE: CASE EVENT DATE: 20221204
